FAERS Safety Report 9027191 (Version 2)
Quarter: 2013Q1

REPORT INFORMATION
  Report Type: Report from Study
  Country: AU (occurrence: AU)
  Receive Date: 20130123
  Receipt Date: 20130306
  Transmission Date: 20140127
  Serious: Yes (Other)
  Sender: FDA-Public Use
  Company Number: AU-ASTRAZENECA-2013SE04271

PATIENT
  Age: 73 Year
  Sex: Male

DRUGS (1)
  1. ZOLADEX IMPLANT [Suspect]
     Indication: PROSTATE CANCER
     Route: 058
     Dates: start: 20100423

REACTIONS (2)
  - Neoplasm malignant [Not Recovered/Not Resolved]
  - Life expectancy shortened [Not Recovered/Not Resolved]
